FAERS Safety Report 12342644 (Version 2)
Quarter: 2016Q3

REPORT INFORMATION
  Report Type: Spontaneous
  Country: US (occurrence: US)
  Receive Date: 20160506
  Receipt Date: 20160715
  Transmission Date: 20161109
  Serious: Yes (Other)
  Sender: FDA-Public Use
  Company Number: US-TEVA-656797USA

PATIENT
  Sex: Female

DRUGS (1)
  1. ZECUITY [Suspect]
     Active Substance: SUMATRIPTAN SUCCINATE
     Route: 062
     Dates: start: 201604, end: 201604

REACTIONS (7)
  - Drug ineffective [Unknown]
  - Application site erythema [Recovered/Resolved]
  - Application site bruise [Recovered/Resolved]
  - Application site swelling [Recovered/Resolved]
  - Application site burn [Recovered/Resolved]
  - Application site scab [Recovered/Resolved]
  - Application site pain [Recovered/Resolved]

NARRATIVE: CASE EVENT DATE: 201604
